FAERS Safety Report 8106719-3 (Version None)
Quarter: 2011Q4

REPORT INFORMATION
  Report Type: 
  Country: None (occurrence: None)
  Receive Date: 20111222
  Receipt Date: 20111109
  Transmission Date: 20120403
  Serious: Yes (Hospitalization)
  Sender: FDA-Public Use
  Company Number: UTC-012258

PATIENT
  Age: 46 Year
  Sex: Female
  Weight: 63.6 kg

DRUGS (6)
  1. LEXIVA [Concomitant]
  2. OXYGEN (OXYGEN) [Concomitant]
  3. NORVIR [Concomitant]
  4. TRUVADA [Concomitant]
  5. TYVASO [Suspect]
     Indication: PULMONARY ARTERIAL HYPERTENSION
     Dosage: 72 MCG (18 MCG,4 IN 1 D),INHALATION
     Route: 055
     Dates: start: 20111006
  6. ADCIRCA [Concomitant]

REACTIONS (4)
  - PNEUMONIA [None]
  - TREATMENT NONCOMPLIANCE [None]
  - NAUSEA [None]
  - STOMATITIS [None]
